FAERS Safety Report 4790106-X (Version None)
Quarter: 2005Q4

REPORT INFORMATION
  Report Type: 
  Country: None (occurrence: None)
  Receive Date: 20051006
  Receipt Date: 20050930
  Transmission Date: 20060501
  Serious: Yes (Death)
  Sender: FDA-Public Use
  Company Number: 200512808JP

PATIENT
  Age: 62 Year
  Sex: Male

DRUGS (3)
  1. TAXOTERE [Suspect]
     Indication: HYPOPHARYNGEAL CANCER RECURRENT
     Route: 041
     Dates: start: 20050921, end: 20050921
  2. CISPLATIN [Concomitant]
     Indication: HYPOPHARYNGEAL CANCER RECURRENT
     Dates: start: 20050921, end: 20050921
  3. FLUOROURACIL [Concomitant]
     Indication: HYPOPHARYNGEAL CANCER RECURRENT
     Dates: start: 20050921, end: 20050924

REACTIONS (1)
  - PULMONARY HAEMORRHAGE [None]
